FAERS Safety Report 16506627 (Version 1)
Quarter: 2019Q3

REPORT INFORMATION
  Report Type: Spontaneous
  Country: CA (occurrence: CA)
  Receive Date: 20190701
  Receipt Date: 20190701
  Transmission Date: 20191004
  Serious: Yes (Life-Threatening, Hospitalization, Other)
  Sender: FDA-Public Use
  Company Number: CA-SA-2019SA173828

PATIENT
  Age: 71 Year
  Sex: Female

DRUGS (6)
  1. ALEMTUZUMAB [Suspect]
     Active Substance: ALEMTUZUMAB
     Indication: MYOCARDITIS
     Dosage: 30 MG, 1X
  2. PEMBROLIZUMAB. [Concomitant]
     Active Substance: PEMBROLIZUMAB
     Indication: MALIGNANT MELANOMA
  3. RITUXIMAB. [Suspect]
     Active Substance: RITUXIMAB
     Indication: OVERLAP SYNDROME
     Dosage: 375 MG/M2, QW
     Route: 042
  4. METHYLPREDNISOLONE SODIUM SUCCINATE. [Suspect]
     Active Substance: METHYLPREDNISOLONE SODIUM SUCCINATE
     Dosage: 200 MG, QD
  5. MYCOPHENOLATE MOFETIL. [Suspect]
     Active Substance: MYCOPHENOLATE MOFETIL
     Indication: MYOCARDITIS
     Dosage: 1 G, BID
     Route: 048
  6. METHYLPREDNISOLONE SODIUM SUCCINATE. [Suspect]
     Active Substance: METHYLPREDNISOLONE SODIUM SUCCINATE
     Indication: MYOCARDITIS
     Dosage: 1 G, QD

REACTIONS (9)
  - Ventricular tachycardia [Recovered/Resolved]
  - Atrial fibrillation [Recovered/Resolved]
  - Overlap syndrome [Recovered/Resolved]
  - Off label use [Unknown]
  - Treatment failure [Recovered/Resolved]
  - Bradycardia [Recovered/Resolved]
  - Myocarditis [Recovered/Resolved]
  - Condition aggravated [Recovered/Resolved]
  - Arrhythmia [Recovered/Resolved]
